FAERS Safety Report 5022174-4 (Version None)
Quarter: 2006Q2

REPORT INFORMATION
  Report Type: 
  Country: None (occurrence: None)
  Receive Date: 20060609
  Receipt Date: 20060530
  Transmission Date: 20061013
  Serious: Yes (Hospitalization, Other)
  Sender: FDA-Public Use
  Company Number: 2006UW11120

PATIENT
  Age: 82 Year
  Sex: Female
  Weight: 81.4 kg

DRUGS (11)
  1. PRILOSEC OTC [Suspect]
     Indication: DIVERTICULUM
     Route: 048
     Dates: start: 20040530, end: 20060530
  2. ALBUTEROL SULFATE AUTOHALER [Concomitant]
  3. FLOVENT [Concomitant]
  4. LASIX [Concomitant]
  5. COREG [Concomitant]
  6. SINGULAIR [Concomitant]
  7. HUMIBID [Concomitant]
  8. COLACE [Concomitant]
  9. TUMS [Concomitant]
  10. FOSAMAX [Concomitant]
  11. OXYGEN [Concomitant]

REACTIONS (4)
  - CONVULSION [None]
  - DIZZINESS [None]
  - FALL [None]
  - SYNCOPE [None]
